FAERS Safety Report 7823563-2 (Version None)
Quarter: 2011Q4

REPORT INFORMATION
  Report Type: 
  Country: None (occurrence: None)
  Receive Date: 20111014
  Receipt Date: 20111006
  Transmission Date: 20120403
  Serious: Yes (Hospitalization)
  Sender: FDA-Public Use
  Company Number: CIP11001977

PATIENT
  Age: 71 Year
  Sex: Female

DRUGS (17)
  1. ACTONEL [Suspect]
     Dosage: 35 MG ONCE WEEKLY,ORAL
     Route: 048
     Dates: start: 20010101, end: 20110701
  2. FERROUS SULFATE TAB [Concomitant]
  3. BETHANECHOL (BETHANECHOL) [Concomitant]
  4. PREMARIN [Concomitant]
  5. AMBIEN [Concomitant]
  6. METOPROLOL SUCCINATE [Concomitant]
  7. NITROFURANTOIN (NITROFURATOIN) [Concomitant]
  8. ALBUTEROL [Concomitant]
  9. LISINOPRIL [Concomitant]
  10. AMIODARONE HCL [Concomitant]
  11. ERGOCALCIFEROL [Concomitant]
  12. WELLBUTRIN XL (BUPROPIN HYDROCHLORIDE) [Concomitant]
  13. ADVAIR HFA [Concomitant]
  14. ASPIRIN [Concomitant]
  15. SPIRIVA [Concomitant]
  16. FAMOTIDINE [Concomitant]
  17. FLOMAX   /0088990/ (MORNIFLUMATE) [Concomitant]

REACTIONS (8)
  - MITRAL VALVE INCOMPETENCE [None]
  - OEDEMA PERIPHERAL [None]
  - ECCHYMOSIS [None]
  - FEMUR FRACTURE [None]
  - ANAEMIA [None]
  - FRACTURE DISPLACEMENT [None]
  - BUNDLE BRANCH BLOCK LEFT [None]
  - URINARY RETENTION [None]
